FAERS Safety Report 9815676 (Version 4)
Quarter: 2014Q1

REPORT INFORMATION
  Report Type: Spontaneous
  Country: US (occurrence: US)
  Receive Date: 20140114
  Receipt Date: 20140225
  Transmission Date: 20141002
  Serious: Yes (Hospitalization)
  Sender: FDA-Public Use
  Company Number: US-SA-2014SA002565

PATIENT
  Age: 23 Year
  Sex: Female

DRUGS (5)
  1. CEREZYME [Suspect]
     Indication: GAUCHER^S DISEASE
     Dosage: DOSE:3200 UNIT(S)
     Route: 042
     Dates: start: 1999
  2. CEREZYME [Suspect]
     Indication: GAUCHER^S DISEASE
     Dosage: DOSE:3200 UNIT(S)
     Route: 042
     Dates: start: 201105
  3. VICODIN [Concomitant]
  4. ZAVESCA [Concomitant]
  5. VPRIV [Concomitant]

REACTIONS (2)
  - Hepatic failure [Recovered/Resolved]
  - Suicide attempt [Unknown]
